FAERS Safety Report 12266105 (Version 1)
Quarter: 2016Q2

REPORT INFORMATION
  Report Type: Spontaneous
  Country: US (occurrence: US)
  Receive Date: 20160413
  Receipt Date: 20160413
  Transmission Date: 20160815
  Serious: Yes (Other)
  Sender: FDA-Public Use
  Company Number: US-TAKEDA-2016TUS006129

PATIENT
  Age: 23 Year
  Sex: Female

DRUGS (2)
  1. 6-MP [Concomitant]
     Active Substance: MERCAPTOPURINE
     Dosage: UNK
  2. ENTYVIO [Suspect]
     Active Substance: VEDOLIZUMAB
     Indication: CROHN^S DISEASE
     Dosage: 300 MG, UNK
     Route: 042

REACTIONS (1)
  - Nasal septum perforation [Unknown]
